FAERS Safety Report 9381489 (Version 2)
Quarter: 2014Q3

REPORT INFORMATION
  Report Type: Report from Study
  Country: DE (occurrence: DE)
  Receive Date: 20130703
  Receipt Date: 20140725
  Transmission Date: 20150326
  Serious: Yes (Hospitalization)
  Sender: FDA-Public Use
  Company Number: PHHO2012DE017420

PATIENT

DRUGS (7)
  1. PROGRAF [Suspect]
     Active Substance: TACROLIMUS\TACROLIMUS ANHYDROUS
     Dosage: 5.5 MG, BID
     Route: 048
     Dates: start: 20121204
  2. PROGRAF [Suspect]
     Active Substance: TACROLIMUS\TACROLIMUS ANHYDROUS
     Dosage: 5.5 MG, BID
     Route: 048
     Dates: start: 20121026, end: 20121123
  3. DECORTIN [Suspect]
     Active Substance: PREDNISONE
     Dosage: 20 MG, UNK
     Route: 048
     Dates: start: 20121026, end: 20121123
  4. DECORTIN [Suspect]
     Active Substance: PREDNISONE
     Dosage: 20 MG, UNK
     Route: 048
     Dates: start: 20121204
  5. PROGRAF [Suspect]
     Active Substance: TACROLIMUS\TACROLIMUS ANHYDROUS
     Indication: PANCREAS TRANSPLANT
     Dosage: 5 MG, BID
     Route: 048
     Dates: start: 20120221, end: 20121016
  6. DECORTIN [Suspect]
     Active Substance: PREDNISONE
     Indication: PANCREAS TRANSPLANT
     Dosage: 30 MG, QD
     Route: 048
     Dates: start: 20120223, end: 20121016
  7. MYCOPHENOLIC ACID [Suspect]
     Active Substance: MYCOPHENOLIC ACID
     Indication: PANCREAS TRANSPLANT
     Dosage: 360 MG, TID
     Route: 048
     Dates: start: 20120221, end: 20121002

REACTIONS (2)
  - Impaired healing [Recovered/Resolved]
  - Pancreas transplant rejection [Recovered/Resolved]

NARRATIVE: CASE EVENT DATE: 20121001
